FAERS Safety Report 8013376-3 (Version None)
Quarter: 2011Q4

REPORT INFORMATION
  Report Type: 
  Country: None (occurrence: None)
  Receive Date: 20111229
  Receipt Date: 20111219
  Transmission Date: 20120403
  Serious: Yes (Congenital Anomaly)
  Sender: FDA-Public Use
  Company Number: DE-TEVA-314125GER

PATIENT
  Age: 0 Year
  Sex: Male

DRUGS (7)
  1. TOPIRAMATE [Suspect]
     Route: 064
  2. MULTIBIONTA FORTE N [Concomitant]
     Route: 064
  3. LEVOTHYROXINE SODIUM [Concomitant]
     Route: 064
  4. PROTHYRID [Concomitant]
     Route: 064
  5. GRIPPEIMPFSTOFF STADA [Concomitant]
     Route: 064
  6. JODID [Concomitant]
     Route: 064
  7. LOCABIOSOL S INHALIERSPRAY [Concomitant]
     Route: 064

REACTIONS (1)
  - HYPOSPADIAS [None]
